FAERS Safety Report 7574782-4 (Version None)
Quarter: 2011Q2

REPORT INFORMATION
  Report Type: 
  Country: None (occurrence: None)
  Receive Date: 20110627
  Receipt Date: 20110622
  Transmission Date: 20111010
  Serious: No
  Sender: FDA-Public Use
  Company Number: US-PFIZER INC-2011138910

PATIENT
  Age: 11 Year
  Sex: Male

DRUGS (2)
  1. GEODON [Suspect]
     Indication: AUTISM
     Dosage: UNK
  2. XANAX [Concomitant]
     Dosage: UNK

REACTIONS (2)
  - DRUG EFFECT DECREASED [None]
  - WRONG TECHNIQUE IN DRUG USAGE PROCESS [None]
